FAERS Safety Report 13430079 (Version 5)
Quarter: 2022Q2

REPORT INFORMATION
  Report Type: Report from Study
  Country: US (occurrence: US)
  Receive Date: 20170412
  Receipt Date: 20220427
  Transmission Date: 20220721
  Serious: Yes (Hospitalization, Other)
  Sender: FDA-Public Use
  Company Number: US-AMGEN-USASP2017053862

PATIENT
  Age: 71 Year
  Sex: Female

DRUGS (5)
  1. ENBREL [Suspect]
     Active Substance: ETANERCEPT
     Indication: Rheumatoid arthritis
     Dosage: 50 MILLIGRAM, QWK
     Route: 065
     Dates: start: 1996, end: 2005
  2. ENBREL [Suspect]
     Active Substance: ETANERCEPT
     Dosage: 50 MILLIGRAM, QWK
     Route: 065
     Dates: end: 2007
  3. ENBREL [Suspect]
     Active Substance: ETANERCEPT
     Dosage: 50 MILLIGRAM, QWK
     Route: 065
  4. ENBREL [Suspect]
     Active Substance: ETANERCEPT
     Dosage: 50 MILLIGRAM, QWK
     Route: 065
  5. ENBREL [Suspect]
     Active Substance: ETANERCEPT
     Dosage: 50 MILLIGRAM, QWK
     Route: 065

REACTIONS (30)
  - Mycobacterium avium complex infection [Unknown]
  - Wound infection [Unknown]
  - Coronary artery occlusion [Unknown]
  - Asthma [Unknown]
  - Myocardial infarction [Unknown]
  - Emotional distress [Unknown]
  - Rheumatoid arthritis [Unknown]
  - Macular degeneration [Unknown]
  - Cataract [Unknown]
  - Foot operation [Unknown]
  - Deafness [Unknown]
  - Adverse drug reaction [Unknown]
  - Therapeutic product effect decreased [Unknown]
  - Chills [Unknown]
  - Hypersensitivity [Unknown]
  - Nasopharyngitis [Unknown]
  - Injection site haemorrhage [Unknown]
  - Injection site pruritus [Unknown]
  - Injection site erythema [Unknown]
  - Glucose tolerance impaired [Unknown]
  - Thyroid hormones decreased [Unknown]
  - Incorrect dose administered [Unknown]
  - Wrong technique in product usage process [Unknown]
  - Blood pressure fluctuation [Unknown]
  - Chest discomfort [Unknown]
  - Heart rate increased [Unknown]
  - Epistaxis [Unknown]
  - Urticaria [Unknown]
  - Impaired healing [Unknown]
  - Skin laceration [Unknown]

NARRATIVE: CASE EVENT DATE: 20050101
